FAERS Safety Report 17191413 (Version 3)
Quarter: 2020Q1

REPORT INFORMATION
  Report Type: Spontaneous
  Country: US (occurrence: US)
  Receive Date: 20191223
  Receipt Date: 20200224
  Transmission Date: 20200409
  Serious: Yes (Hospitalization, Other)
  Sender: FDA-Public Use
  Company Number: US-PFIZER INC-2019547173

PATIENT
  Age: 15 Year
  Sex: Male
  Weight: 123 kg

DRUGS (50)
  1. GLYXAMBI [Concomitant]
     Active Substance: EMPAGLIFLOZIN\LINAGLIPTIN
     Dosage: UNK (25MG/5 MG)
  2. QUETIAPINE. [Concomitant]
     Active Substance: QUETIAPINE
     Dosage: UNK
     Dates: start: 2005
  3. ATORVASTATIN [Concomitant]
     Active Substance: ATORVASTATIN
     Dosage: UNK
     Dates: start: 2005
  4. METFORMIN [Concomitant]
     Active Substance: METFORMIN HYDROCHLORIDE
     Dosage: UNK
     Dates: start: 2005
  5. ADVAIR HFA [Concomitant]
     Active Substance: FLUTICASONE PROPIONATE\SALMETEROL XINAFOATE
     Dosage: 1 DF, 2X/DAY (FLUTICASONE PROPIONATE: 100MCG, SALMETEROL XINAFOATE: 50MG)
     Route: 055
  6. NOVOLOG [Concomitant]
     Active Substance: INSULIN ASPART
     Dosage: 24 IU, 3X/DAY
     Route: 058
     Dates: start: 20180730, end: 20191122
  7. NOVOLOG [Concomitant]
     Active Substance: INSULIN ASPART
     Dosage: 24 IU, 3X/DAY
     Route: 058
     Dates: start: 20180811, end: 20191124
  8. LITHIUM CARBONATE. [Concomitant]
     Active Substance: LITHIUM CARBONATE
     Dosage: 300 MG, 2X/DAY
  9. LEVOTHYROXINE. [Concomitant]
     Active Substance: LEVOTHYROXINE
     Dosage: 50 UG, 1X/DAY (TAKE EMPTY STOMACH IN THE MORNING 30 MIN BEFORE EATING OR DRINKING.)
     Dates: start: 20171227
  10. ATORVASTATIN [Concomitant]
     Active Substance: ATORVASTATIN
     Dosage: 40 MG, 1X/DAY (1 TABLET, 1 TIME PER DAY FOR 30 DAYS)
     Dates: start: 20171227
  11. LYRICA [Suspect]
     Active Substance: PREGABALIN
     Indication: NEUROPATHY PERIPHERAL
     Dosage: 50 MG, 3X/DAY (OVER 5 YEARS)
     Route: 048
  12. LYRICA [Suspect]
     Active Substance: PREGABALIN
     Indication: BIPOLAR DISORDER
     Dosage: 50 MG, 3X/DAY
     Dates: start: 2005
  13. LYRICA [Suspect]
     Active Substance: PREGABALIN
     Dosage: 50 MG, 3X/DAY
     Route: 048
     Dates: start: 20181214, end: 20191209
  14. TAMSULOSIN [Concomitant]
     Active Substance: TAMSULOSIN
     Dosage: UNK
     Dates: start: 2005
  15. TOUJEO [Concomitant]
     Active Substance: INSULIN GLARGINE
     Dosage: 65 IU, 2X/DAY (65 UNITS/AT BEDTIME )
     Route: 058
  16. PROVENTIL HFA [Concomitant]
     Active Substance: ALBUTEROL SULFATE
     Indication: WHEEZING
  17. FLUTICASONE. [Concomitant]
     Active Substance: FLUTICASONE
     Dosage: UNK, 2X/DAY
     Route: 045
  18. ASPIRIN. [Concomitant]
     Active Substance: ASPIRIN
     Dosage: UNK
     Dates: start: 2005
  19. LISINOPRIL. [Concomitant]
     Active Substance: LISINOPRIL
     Dosage: UNK
     Dates: start: 2005
  20. GABAPENTIN. [Suspect]
     Active Substance: GABAPENTIN
     Indication: NEUROPATHY PERIPHERAL
     Dosage: 50 MG, 3X/DAY
     Dates: start: 2005
  21. GLYXAMBI [Concomitant]
     Active Substance: EMPAGLIFLOZIN\LINAGLIPTIN
     Dosage: UNK
     Dates: start: 2017, end: 2019
  22. NOVOLOG [Concomitant]
     Active Substance: INSULIN ASPART
     Dosage: 24 IU, 3X/DAY
     Route: 058
  23. TRAZODONE [Concomitant]
     Active Substance: TRAZODONE HYDROCHLORIDE
     Dosage: UNK, 1X/DAY (.5 TABLETS, 1 TIME PER DAY)
  24. FLUTICASONE. [Concomitant]
     Active Substance: FLUTICASONE
     Dosage: UNK
     Dates: start: 1999
  25. ASPIRIN. [Concomitant]
     Active Substance: ASPIRIN
     Dosage: 81 MG, 1X/DAY
     Dates: start: 20170606
  26. LYRICA [Suspect]
     Active Substance: PREGABALIN
     Indication: BIPOLAR II DISORDER
     Dosage: 50 MG, 3X/DAY
     Route: 048
     Dates: start: 20181019, end: 20191014
  27. GABAPENTIN. [Suspect]
     Active Substance: GABAPENTIN
     Indication: BIPOLAR II DISORDER
  28. ADVAIR HFA [Concomitant]
     Active Substance: FLUTICASONE PROPIONATE\SALMETEROL XINAFOATE
     Dosage: UNK
     Dates: start: 2002
  29. TOUJEO [Concomitant]
     Active Substance: INSULIN GLARGINE
     Dosage: UNK
     Dates: start: 2005
  30. TOUJEO [Concomitant]
     Active Substance: INSULIN GLARGINE
     Dosage: 100 IU, 1X/DAY (AT BEDTIME)
     Route: 058
     Dates: start: 20181107, end: 20191102
  31. QUETIAPINE. [Concomitant]
     Active Substance: QUETIAPINE
     Dosage: 25 MG, 1X/DAY
  32. LORATADINE. [Concomitant]
     Active Substance: LORATADINE
     Dosage: 20 MG, 1X/DAY
  33. FLUTICASONE. [Concomitant]
     Active Substance: FLUTICASONE
     Dosage: 1 DF, 2X/DAY
     Route: 045
  34. NOVOLOG [Concomitant]
     Active Substance: INSULIN ASPART
     Dosage: 24 DF, 3X/DAY
     Dates: start: 20170606
  35. TAMSULOSIN [Concomitant]
     Active Substance: TAMSULOSIN
     Dosage: 0.4 MG, 1X/DAY (1 TABLET, 1 TIME PER DAY FOR 30 DAYS)
     Dates: start: 20180110
  36. LOVAZA [Concomitant]
     Active Substance: OMEGA-3-ACID ETHYL ESTERS
     Dosage: 1 G, 2X/DAY (1 TABLET, 2 TIMES PER DAY FOR 30 DAYS WITH MEALS 340 B)
     Dates: start: 20180830
  37. GLYXAMBI [Concomitant]
     Active Substance: EMPAGLIFLOZIN\LINAGLIPTIN
     Dosage: 5 MG, UNK
  38. CYMBALTA [Concomitant]
     Active Substance: DULOXETINE HYDROCHLORIDE
     Dosage: 90 MG, DAILY
  39. TRAZODONE [Concomitant]
     Active Substance: TRAZODONE HYDROCHLORIDE
     Dosage: UNK
     Dates: start: 2005
  40. FENOFIBRATE. [Concomitant]
     Active Substance: FENOFIBRATE
     Dosage: UNK
     Dates: start: 2005
  41. LISINOPRIL. [Concomitant]
     Active Substance: LISINOPRIL
     Dosage: 10 MG, 1X/DAY (FOR 3 MONTHS)
     Dates: start: 20180927
  42. PEGSTIM [Concomitant]
     Dosage: UNK
  43. GLYXAMBI [Concomitant]
     Active Substance: EMPAGLIFLOZIN\LINAGLIPTIN
     Dosage: UNK
     Dates: start: 2007, end: 2014
  44. NOVOLOG [Concomitant]
     Active Substance: INSULIN ASPART
     Dosage: UNK
     Dates: start: 2005
  45. VENTOLIN [Concomitant]
     Active Substance: ALBUTEROL SULFATE
     Dosage: 2 DF, 4X/DAY (90 MCG/ACTUATION)
     Route: 055
  46. PROVENTIL HFA [Concomitant]
     Active Substance: ALBUTEROL SULFATE
     Indication: DYSPNOEA
     Dosage: UNK, AS NEEDED (90 MCG/ACTUATION, 1-2 PUFFS EVERY 6 HOURS)
     Route: 055
  47. NOVOLOG [Concomitant]
     Active Substance: INSULIN ASPART
     Dosage: UNK
     Dates: start: 2005
  48. LEVOTHYROXINE. [Concomitant]
     Active Substance: LEVOTHYROXINE
     Dosage: UNK
     Dates: start: 2005
  49. FENOFIBRATE. [Concomitant]
     Active Substance: FENOFIBRATE
     Dosage: 145 MG, 1X/DAY (1 TABLET, 1 TIME PER DAY FOR 30 DAYS)
     Dates: start: 20171227
  50. LOVAZA [Concomitant]
     Active Substance: OMEGA-3-ACID ETHYL ESTERS
     Dosage: UNK
     Dates: start: 2005

REACTIONS (20)
  - Feeling abnormal [Not Recovered/Not Resolved]
  - Neck injury [Unknown]
  - Fatigue [Unknown]
  - Balance disorder [Unknown]
  - Pain in extremity [Unknown]
  - Myocardial infarction [Unknown]
  - Fall [Unknown]
  - Hypersomnia [Unknown]
  - Tendon rupture [Unknown]
  - Gait disturbance [Not Recovered/Not Resolved]
  - Memory impairment [Not Recovered/Not Resolved]
  - Nervous system disorder [Not Recovered/Not Resolved]
  - Blindness unilateral [Unknown]
  - Limb injury [Unknown]
  - Joint injury [Unknown]
  - Cerebrovascular accident [Unknown]
  - Headache [Unknown]
  - Hypoacusis [Recovered/Resolved]
  - Hypoaesthesia [Recovered/Resolved]
  - Loss of consciousness [Unknown]

NARRATIVE: CASE EVENT DATE: 1981
